FAERS Safety Report 6493686-1 (Version None)
Quarter: 2009Q4

REPORT INFORMATION
  Report Type: 
  Country: None (occurrence: None)
  Receive Date: 20091214
  Receipt Date: 20091207
  Transmission Date: 20100525
  Serious: Yes (Other)
  Sender: FDA-Public Use
  Company Number: B0613416A

PATIENT
  Sex: Female

DRUGS (6)
  1. VENTOLIN [Suspect]
     Indication: BRONCHOSPASM
     Route: 048
     Dates: start: 20091202, end: 20091203
  2. CLARITHROMYCIN [Concomitant]
     Dosage: 500MG PER DAY
     Route: 065
  3. BRISOMAX [Concomitant]
     Indication: BRONCHOSPASM
     Route: 065
  4. DAFLON [Concomitant]
     Indication: ILL-DEFINED DISORDER
     Route: 065
  5. KAINEVER [Concomitant]
     Indication: INSOMNIA
     Route: 065
  6. NUVELLE [Concomitant]
     Indication: HORMONE REPLACEMENT THERAPY
     Route: 065

REACTIONS (2)
  - DYSGRAPHIA [None]
  - TREMOR [None]
